FAERS Safety Report 20187399 (Version 1)
Quarter: 2021Q4

REPORT INFORMATION
  Report Type: Spontaneous
  Country: US (occurrence: None)
  Receive Date: 20211214
  Receipt Date: 20211214
  Transmission Date: 20220303
  Serious: Yes (Other)
  Sender: FDA-Public Use
  Company Number: None

PATIENT
  Age: 52 Year
  Sex: Female

DRUGS (7)
  1. HUMIRA [Suspect]
     Active Substance: ADALIMUMAB
     Indication: Rheumatoid arthritis
     Dosage: OTHER FREQUENCY : EVERY OTHER WEEK;?
     Route: 058
     Dates: start: 20210915, end: 20211101
  2. METHOTREXATE [Concomitant]
     Active Substance: METHOTREXATE
  3. LISINOPRIL [Concomitant]
     Active Substance: LISINOPRIL
  4. TRAMADOL [Concomitant]
     Active Substance: TRAMADOL
  5. IBUPROFEN [Concomitant]
     Active Substance: IBUPROFEN
  6. FOLIC ACID [Concomitant]
     Active Substance: FOLIC ACID
  7. MONTELUKAST [Concomitant]
     Active Substance: MONTELUKAST SODIUM

REACTIONS (3)
  - Headache [None]
  - Abdominal pain upper [None]
  - Therapy cessation [None]

NARRATIVE: CASE EVENT DATE: 20211117
